FAERS Safety Report 9073672 (Version 1)
Quarter: 2013Q1

REPORT INFORMATION
  Report Type: Spontaneous
  Country: US (occurrence: US)
  Receive Date: 20130129
  Receipt Date: 20130129
  Transmission Date: 20140127
  Serious: No
  Sender: FDA-Public Use
  Company Number: US-BAYER-2013-005894

PATIENT
  Age: 48 Year
  Sex: Female
  Weight: 107.48 kg

DRUGS (30)
  1. BETASERON [Suspect]
     Indication: RELAPSING-REMITTING MULTIPLE SCLEROSIS
     Dosage: 0.3 MG, QOD
     Route: 058
  2. HUMALOG [Concomitant]
     Dosage: 100 /ML, UNK
  3. PHENERGAN [Concomitant]
     Dosage: 25 MG, UNK
  4. PROTONIX [Concomitant]
     Dosage: 40 MG, UNK
  5. LASIX [Concomitant]
     Dosage: 20 MG, UNK
  6. ROPINIROLE [Concomitant]
     Dosage: 3 MG, UNK
  7. NEURONTIN [Concomitant]
     Dosage: 100 MG, UNK
  8. NITRO-DUR [Concomitant]
     Dosage: 0.4 MG/HR, UNK
  9. LANTUS [Concomitant]
     Dosage: 100 /ML, UNK
  10. TRAMADOL HYDROCHLORIDE [Concomitant]
     Dosage: 50 MG, UNK
  11. CALCITROL [Concomitant]
     Dosage: 0.5 ?G, UNK
  12. ATENOLOL [Concomitant]
     Dosage: 50 MG, UNK
  13. LISINOPRIL [Concomitant]
     Dosage: 5 MG, UNK
  14. ISOSORBID DINITRATE [Concomitant]
     Dosage: 5 MG, UNK
  15. ZANTAC [Concomitant]
     Dosage: 150 MG, UNK
  16. CRESTOR [Concomitant]
     Dosage: 10 MG, UNK
  17. ALLOPURINOL [Concomitant]
     Dosage: 100 MG, UNK
  18. PLAVIX [Concomitant]
     Dosage: 75 MG, UNK
  19. LEXAPRO [Concomitant]
     Dosage: 5 MG, UNK
  20. MAGNESIUM [Concomitant]
     Dosage: 250 MG, UNK
  21. ZANAFLEX [Concomitant]
     Dosage: 2 MG, UNK
  22. ENDOCET [Concomitant]
     Dosage: 7.5-500M
  23. NITROGLYCERIN [Concomitant]
     Dosage: 0.4 MG, UNK
  24. CARBAMAZEPIN [Concomitant]
     Dosage: 100 MG, UNK
  25. B-COMPLEX [Concomitant]
  26. ASPIRIN [Concomitant]
     Dosage: 81 MG, UNK
  27. TYLENOL MAXIMUM-STRENGTH ALLERGY SINUS [Concomitant]
  28. VITAMIN D3 [Concomitant]
     Dosage: 10000 U, UNK
  29. MULTIVITAMIN [Concomitant]
  30. TYLENOL [PARACETAMOL] [Concomitant]
     Dosage: 500 MG, UNK

REACTIONS (4)
  - Chest pain [Recovered/Resolved]
  - Palpitations [Recovered/Resolved]
  - Fatigue [Recovered/Resolved]
  - Asthenia [Recovered/Resolved]
